FAERS Safety Report 20060371 (Version 1)
Quarter: 2021Q4

REPORT INFORMATION
  Report Type: Spontaneous
  Country: SG (occurrence: SG)
  Receive Date: 20211112
  Receipt Date: 20211112
  Transmission Date: 20220303
  Serious: No
  Sender: FDA-Public Use
  Company Number: SG-LUPIN PHARMACEUTICALS INC.-2021-21495

PATIENT
  Age: 30 Year
  Sex: Female

DRUGS (3)
  1. LEVOTHYROXINE [Interacting]
     Active Substance: LEVOTHYROXINE
     Indication: Thyroid hormone replacement therapy
     Dosage: UNK, DOSAGE: 100MCG ON WEEKDAYS AND 125MCG ON WEEKENDS (TOTAL 750MCG/WEEK)
     Route: 048
  2. CALCIUM [Interacting]
     Active Substance: CALCIUM
     Indication: Hypoparathyroidism secondary
     Dosage: UNK, DOSAGE: 600MG ON WEEKDAYS AND 1200MG ON WEEKENDS
     Route: 065
  3. CALCITRIOL [Concomitant]
     Active Substance: CALCITRIOL
     Indication: Hypoparathyroidism secondary
     Dosage: 25 MICROGRAM, QD
     Route: 065

REACTIONS (2)
  - Blood thyroid stimulating hormone increased [Recovered/Resolved]
  - Drug interaction [Recovered/Resolved]
